FAERS Safety Report 4654672-7 (Version None)
Quarter: 2005Q2

REPORT INFORMATION
  Report Type: 
  Country: None (occurrence: None)
  Receive Date: 20050503
  Receipt Date: 20050503
  Transmission Date: 20051028
  Serious: Yes (Death)
  Sender: FDA-Public Use
  Company Number: None

PATIENT
  Age: 60 Year
  Sex: Male
  Weight: 83.9154 kg

DRUGS (2)
  1. RISPERDAL [Suspect]
     Indication: SCHIZOPHRENIA
     Dosage: MANY YEARS
  2. MELLARIL [Suspect]
     Indication: DEPRESSION

REACTIONS (1)
  - MYOCARDIAL INFARCTION [None]
